FAERS Safety Report 14708598 (Version 3)
Quarter: 2018Q2

REPORT INFORMATION
  Report Type: Spontaneous
  Country: JP (occurrence: JP)
  Receive Date: 20180403
  Receipt Date: 20180412
  Transmission Date: 20180711
  Serious: Yes (Other)
  Sender: FDA-Public Use
  Company Number: JP-PFIZER INC-2018133378

PATIENT
  Age: 76 Year
  Sex: Female
  Weight: 38 kg

DRUGS (9)
  1. CLARITHROMYCIN. [Concomitant]
     Active Substance: CLARITHROMYCIN
     Indication: BRONCHITIS
     Dosage: UNK
     Dates: start: 199808
  2. THEOPHYLLINE [Concomitant]
     Active Substance: THEOPHYLLINE ANHYDROUS
     Indication: BRONCHITIS
     Dosage: UNK (SUSTAINED-RELEASE)
     Dates: start: 199808
  3. AMBROXOL HYDROCHLORIDE [Concomitant]
     Active Substance: AMBROXOL HYDROCHLORIDE
     Indication: BRONCHITIS
     Dosage: UNK
     Dates: start: 199808
  4. LEVOFLOXACIN. [Suspect]
     Active Substance: LEVOFLOXACIN
     Indication: BRONCHITIS
     Dosage: UNK
     Dates: start: 199808
  5. PRANLUKAST HYDRATE [Concomitant]
     Active Substance: PRANLUKAST HEMIHYDRATE
     Indication: ASTHMA
     Dosage: UNK
     Dates: start: 199808
  6. SERATRODAST [Concomitant]
     Active Substance: SERATRODAST
     Indication: ASTHMA
     Dosage: UNK
     Dates: start: 199808
  7. SERATRODAST [Concomitant]
     Active Substance: SERATRODAST
     Indication: BRONCHITIS
  8. PL [Concomitant]
     Active Substance: ACETAMINOPHEN\CAFFEINE\PROMETHAZINE\SALICYLAMIDE
     Indication: BRONCHITIS
     Dosage: UNK (NON-PYRINE COLD MEDICINE)
     Dates: start: 199901
  9. CEFCAPENE PIVOXIL HYDROCHLORIDE [Concomitant]
     Active Substance: CEFCAPENE PIVOXIL HYDROCHLORIDE
     Dosage: UNK
     Dates: start: 1999

REACTIONS (1)
  - Eosinophilic pneumonia [Recovered/Resolved]
